FAERS Safety Report 14518051 (Version 1)
Quarter: 2018Q1

REPORT INFORMATION
  Report Type: Report from Study
  Country: MX (occurrence: MX)
  Receive Date: 20180212
  Receipt Date: 20180212
  Transmission Date: 20180509
  Serious: Yes (Other)
  Sender: FDA-Public Use
  Company Number: PHHY2018MX014027

PATIENT
  Sex: Female
  Weight: 54 kg

DRUGS (6)
  1. GALVUS MET [Suspect]
     Active Substance: METFORMIN HYDROCHLORIDE\VILDAGLIPTIN
     Dosage: 1 DF, (VILDAGLIPTIN 50 MG/ METFORMIN 850 MG),  BID
     Route: 048
     Dates: start: 20180123
  2. METFORMIN [Suspect]
     Active Substance: METFORMIN HYDROCHLORIDE
     Indication: DIABETES MELLITUS
     Dosage: 3 DF (850MG), QD
     Route: 048
     Dates: start: 2015, end: 201801
  3. GALVUS MET [Suspect]
     Active Substance: METFORMIN HYDROCHLORIDE\VILDAGLIPTIN
     Indication: DIABETES MELLITUS
     Dosage: 1 DF, (VILDAGLIPTIN 50 MG/ METFORMIN 850 MG), BID
     Route: 048
     Dates: start: 2015
  4. LEXOTAN [Concomitant]
     Active Substance: BROMAZEPAM
     Indication: MENOPAUSE
     Dosage: 1 DF, QD (SINCE 16 YEARS)
     Route: 048
  5. GLIBENCLAMIDE [Suspect]
     Active Substance: GLYBURIDE
     Indication: DIABETES MELLITUS
     Dosage: 3 DF (850MG), QD
     Route: 048
     Dates: start: 2015, end: 201801
  6. LEXOTAN [Concomitant]
     Active Substance: BROMAZEPAM
     Indication: NEURALGIA

REACTIONS (6)
  - Blood glucose increased [Recovering/Resolving]
  - Cataract [Not Recovered/Not Resolved]
  - Diabetes mellitus inadequate control [Recovering/Resolving]
  - Hypertension [Not Recovered/Not Resolved]
  - Dry eye [Unknown]
  - Malaise [Not Recovered/Not Resolved]
